FAERS Safety Report 14292978 (Version 2)
Quarter: 2018Q1

REPORT INFORMATION
  Report Type: Report from Study
  Country: US (occurrence: US)
  Receive Date: 20171215
  Receipt Date: 20180125
  Transmission Date: 20180509
  Serious: Yes (Other)
  Sender: FDA-Public Use
  Company Number: PHEH2017US039956

PATIENT
  Sex: Female
  Weight: 53.52 kg

DRUGS (1)
  1. GILENYA [Suspect]
     Active Substance: FINGOLIMOD HYDROCHLORIDE
     Indication: PRODUCT USED FOR UNKNOWN INDICATION
     Route: 065

REACTIONS (7)
  - Cough [Unknown]
  - Fatigue [Unknown]
  - Incontinence [Unknown]
  - Pneumonia [Unknown]
  - Diarrhoea [Not Recovered/Not Resolved]
  - Grip strength decreased [Unknown]
  - Vision blurred [Unknown]
